FAERS Safety Report 6547383-4 (Version None)
Quarter: 2010Q1

REPORT INFORMATION
  Report Type: 
  Country: None (occurrence: None)
  Receive Date: 20100122
  Receipt Date: 20100119
  Transmission Date: 20100710
  Serious: No
  Sender: FDA-Public Use
  Company Number: US-B.I. PHARMACEUTICALS,INC./RIDGEFIELD-2010-BP-00734BP

PATIENT
  Sex: Female

DRUGS (10)
  1. SPIRIVA [Suspect]
     Indication: CHRONIC OBSTRUCTIVE PULMONARY DISEASE
     Dosage: 18 MCG
     Route: 055
     Dates: start: 20100114
  2. LIPITOR [Suspect]
     Indication: BLOOD CHOLESTEROL INCREASED
  3. ZYRTEC [Suspect]
  4. ZETIA [Suspect]
     Indication: BLOOD CHOLESTEROL INCREASED
  5. LEXAPRO [Suspect]
  6. HYDROCHLOROTHIAZIDE [Concomitant]
  7. LEVOTHYROXINE SODIUM [Concomitant]
  8. AMBIEN [Concomitant]
  9. ESTRADIOL [Concomitant]
  10. TRAMADOL [Concomitant]

REACTIONS (4)
  - AGITATION [None]
  - ANXIETY [None]
  - IMPATIENCE [None]
  - IRRITABILITY [None]
